FAERS Safety Report 8261649-1 (Version None)
Quarter: 2012Q2

REPORT INFORMATION
  Report Type: 
  Country: None (occurrence: None)
  Receive Date: 20120405
  Receipt Date: 20120405
  Transmission Date: 20120825
  Serious: Yes (Other)
  Sender: FDA-Public Use
  Company Number: None

PATIENT
  Age: 56 Year
  Sex: Male
  Weight: 61.234 kg

DRUGS (2)
  1. ALPRAZOLAM [Suspect]
     Indication: PANIC DISORDER
     Dosage: 2MG
     Route: 048
     Dates: start: 19920101, end: 20120303
  2. XANAX [Concomitant]

REACTIONS (5)
  - PRODUCT TASTE ABNORMAL [None]
  - DYSGEUSIA [None]
  - DRUG TOLERANCE [None]
  - ASTHENIA [None]
  - PRODUCT SUBSTITUTION ISSUE [None]
